FAERS Safety Report 8516464-8 (Version None)
Quarter: 2012Q3

REPORT INFORMATION
  Report Type: 
  Country: None (occurrence: None)
  Receive Date: 20120718
  Receipt Date: 20120713
  Transmission Date: 20120928
  Serious: No
  Sender: FDA-Public Use
  Company Number: US-PFIZER INC-2012170747

PATIENT
  Sex: Female

DRUGS (3)
  1. DEMEROL [Suspect]
     Dosage: UNK
  2. TETRACYCLINE HYDROCHLORIDE [Suspect]
     Dosage: UNK
  3. MORPHINE SULFATE [Suspect]
     Dosage: UNK
     Route: 048

REACTIONS (1)
  - DRUG HYPERSENSITIVITY [None]
